FAERS Safety Report 7285375 (Version 5)
Quarter: 2013Q4

REPORT INFORMATION
  Report Type: Spontaneous
  Country: US (occurrence: US)
  Receive Date: 20100219
  Receipt Date: 20131204
  Transmission Date: 20140711
  Serious: Yes (Hospitalization, Other)
  Sender: FDA-Public Use
  Company Number: US-BAYER-201014089NA

PATIENT
  Age: 22 Year
  Sex: Female
  Weight: 73 kg

DRUGS (7)
  1. YASMIN [Suspect]
     Indication: ORAL CONTRACEPTION
     Dosage: UNK UNK, UNK
     Route: 048
     Dates: start: 2000
  2. YASMIN [Suspect]
     Indication: PREMENSTRUAL DYSPHORIC DISORDER
  3. ALESSE [Concomitant]
     Dosage: UNK
     Dates: start: 20031107
  4. ENDOCET [Concomitant]
  5. FAMOTIDINE [Concomitant]
     Dosage: 20 MG, UNK
  6. METOCLOPRAMIDE [Concomitant]
     Dosage: 10 MG, UNK
  7. KEFLEX [Concomitant]

REACTIONS (5)
  - Cholelithiasis [Unknown]
  - Cholecystitis acute [None]
  - Abdominal pain upper [Unknown]
  - Gastrooesophageal reflux disease [Not Recovered/Not Resolved]
  - Migraine [Not Recovered/Not Resolved]
